FAERS Safety Report 18935295 (Version 2)
Quarter: 2021Q1

REPORT INFORMATION
  Report Type: Spontaneous
  Country: US (occurrence: US)
  Receive Date: 20210224
  Receipt Date: 20210308
  Transmission Date: 20210420
  Serious: Yes (Death)
  Sender: FDA-Public Use
  Company Number: US-HRARD-202000201

PATIENT
  Age: 23 Year
  Sex: Female

DRUGS (5)
  1. PACLITAXEL. [Concomitant]
     Active Substance: PACLITAXEL
     Indication: ADRENOCORTICAL CARCINOMA
     Dosage: 02 CYCLES AS PALLIATIVE THERAPY
  2. ETOPOSIDE. [Concomitant]
     Active Substance: ETOPOSIDE
     Indication: ADRENOCORTICAL CARCINOMA
     Dosage: DISCONTINUED AFTER 02 CYCLES
  3. CARBOPLATIN. [Concomitant]
     Active Substance: CARBOPLATIN
     Indication: ADRENOCORTICAL CARCINOMA
     Dosage: DISCONTINUED AFTER 02 CYCLES AND THEN 02 NEW CYCLES AS PALLIATIVE THERAPY
  4. MITOTANE [Suspect]
     Active Substance: MITOTANE
     Indication: ADRENOCORTICAL CARCINOMA
  5. DOXORUBICIN [Concomitant]
     Active Substance: DOXORUBICIN
     Indication: ADRENOCORTICAL CARCINOMA
     Dosage: DISCONTINUED AFTER 02 CYCLES

REACTIONS (2)
  - Off label use [Recovered/Resolved]
  - Malignant neoplasm progression [Fatal]
